FAERS Safety Report 7400402-5 (Version None)
Quarter: 2011Q2

REPORT INFORMATION
  Report Type: 
  Country: None (occurrence: None)
  Receive Date: 20110407
  Receipt Date: 20110331
  Transmission Date: 20111010
  Serious: Yes (Other)
  Sender: FDA-Public Use
  Company Number: US-JNJFOC-20110307581

PATIENT
  Sex: Female
  Weight: 83.92 kg

DRUGS (4)
  1. NUCYNTA [Suspect]
     Indication: BACK PAIN
     Route: 048
  2. ACIPHEX [Suspect]
     Indication: GASTROOESOPHAGEAL REFLUX DISEASE
     Dosage: AS NEEDED
     Route: 048
  3. NAPROXEN [Concomitant]
     Indication: PAIN
     Route: 048
  4. XANAX [Concomitant]
     Indication: ANXIETY
     Route: 048

REACTIONS (4)
  - MIGRAINE [None]
  - CONTUSION [None]
  - NERVOUS SYSTEM DISORDER [None]
  - CONVULSION [None]
